FAERS Safety Report 6142967-X (Version None)
Quarter: 2009Q2

REPORT INFORMATION
  Report Type: 
  Country: None (occurrence: None)
  Receive Date: 20090403
  Receipt Date: 20090323
  Transmission Date: 20091009
  Serious: Yes (Hospitalization)
  Sender: FDA-Public Use
  Company Number: GB-NOVOPROD-251509

PATIENT
  Age: 36 Year
  Sex: Male

DRUGS (4)
  1. NORDITROPIN [Suspect]
     Indication: INTENTIONAL DRUG MISUSE
     Dosage: 3-4 IU ON ALTERNATE DAYS
  2. NORDITROPIN [Suspect]
     Dosage: 6 UNK, UNK
  3. STANOZOLOL [Concomitant]
  4. VIRORMONE                          /00103102/ [Concomitant]
     Dosage: 50-100 MG

REACTIONS (2)
  - LARYNGEAL OEDEMA [None]
  - LARYNGOCELE [None]
